FAERS Safety Report 21626488 (Version 1)
Quarter: 2022Q4

REPORT INFORMATION
  Report Type: Spontaneous
  Country: US (occurrence: None)
  Receive Date: 20221122
  Receipt Date: 20221122
  Transmission Date: 20230113
  Serious: No
  Sender: FDA-Public Use
  Company Number: US-ROCHE-3141307

PATIENT

DRUGS (1)
  1. LUCENTIS [Suspect]
     Active Substance: RANIBIZUMAB
     Indication: Product used for unknown indication
     Dosage: ADMINISTRATION BEGAN 5 YEARS AGO AND HAD 55 INJECTIONS
     Route: 031

REACTIONS (1)
  - Drug ineffective [Not Recovered/Not Resolved]
